FAERS Safety Report 4692333-9 (Version None)
Quarter: 2005Q2

REPORT INFORMATION
  Report Type: 
  Country: None (occurrence: None)
  Receive Date: 20050614
  Receipt Date: 20050527
  Transmission Date: 20051028
  Serious: Yes (Hospitalization)
  Sender: FDA-Public Use
  Company Number: 6015327

PATIENT
  Age: 69 Year
  Sex: Male

DRUGS (3)
  1. PIROXICAM [Suspect]
     Dosage: (20 MG, AS NECESSARY) ORAL
     Route: 048
     Dates: end: 20050105
  2. ASPRO CLEAR (150 MG, TABLET) (ACETYLSALICYLIC ACID) [Suspect]
     Dosage: 150 MG (150 MG, 1 IN 1 D) ORAL
     Route: 048
     Dates: end: 20050105
  3. TRITACE (2 MG, TABLET) (RAMIPRIL) [Concomitant]

REACTIONS (4)
  - CIRCULATORY COLLAPSE [None]
  - GASTRIC ULCER [None]
  - HAEMOGLOBIN DECREASED [None]
  - MELAENA [None]
